FAERS Safety Report 7632733-8 (Version None)
Quarter: 2011Q3

REPORT INFORMATION
  Report Type: 
  Country: None (occurrence: None)
  Receive Date: 20110725
  Receipt Date: 20101213
  Transmission Date: 20111222
  Serious: No
  Sender: FDA-Public Use
  Company Number: US-BRISTOL-MYERS SQUIBB COMPANY-15438591

PATIENT
  Age: 59 Year
  Sex: Female

DRUGS (6)
  1. VYTORIN [Concomitant]
  2. LANOXIN [Concomitant]
  3. COUMADIN [Suspect]
  4. TOPROL-XL [Concomitant]
  5. GLUCOPHAGE [Concomitant]
  6. ALTACE [Concomitant]

REACTIONS (1)
  - OROPHARYNGEAL PAIN [None]
